FAERS Safety Report 9863250 (Version 1)
Quarter: 2014Q1

REPORT INFORMATION
  Report Type: Spontaneous
  Country: US (occurrence: US)
  Receive Date: 20140203
  Receipt Date: 20140203
  Transmission Date: 20141002
  Serious: No
  Sender: FDA-Public Use
  Company Number: US-TARO-2013P1004487

PATIENT
  Age: 41 Year
  Sex: Female
  Weight: 113.4 kg

DRUGS (2)
  1. NYSTATIN + TRIAMCINOLONE ACETONIDE CREAM USP [Suspect]
     Indication: RASH
     Route: 061
     Dates: start: 20130124, end: 201302
  2. NYSTATIN + TRIAMCINOLONE ACETONIDE CREAM USP [Suspect]
     Indication: RASH
     Route: 061
     Dates: start: 2013, end: 201303

REACTIONS (1)
  - Fungal skin infection [Not Recovered/Not Resolved]
